FAERS Safety Report 13526169 (Version 1)
Quarter: 2017Q2

REPORT INFORMATION
  Report Type: Other
  Country: FI (occurrence: None)
  Receive Date: 20170509
  Receipt Date: 20170509
  Transmission Date: 20170830
  Serious: Yes (Hospitalization)
  Sender: FDA-Public Use
  Company Number: EU-ORCHID HEALTHCARE-2020428

PATIENT
  Age: 17 Year
  Sex: Male

DRUGS (3)
  1. SUMATRIPTAN. [Suspect]
     Active Substance: SUMATRIPTAN
     Indication: MIGRAINE
     Route: 045
  2. DICLOPHENAC [Concomitant]
     Active Substance: DICLOFENAC SODIUM
     Route: 065
  3. ACETYL SALICYLIC ACID [Concomitant]
     Active Substance: ASPIRIN
     Route: 065

REACTIONS (1)
  - Loss of consciousness [Recovering/Resolving]
